FAERS Safety Report 4491919-4 (Version None)
Quarter: 2004Q4

REPORT INFORMATION
  Report Type: 
  Country: None (occurrence: None)
  Receive Date: 20041029
  Receipt Date: 20041029
  Transmission Date: 20050328
  Serious: Yes (Life-Threatening, Disabling)
  Sender: FDA-Public Use
  Company Number: None

PATIENT
  Sex: Male
  Weight: 88.4514 kg

DRUGS (5)
  1. METHYLPHENIDATE HCL [Suspect]
     Indication: DEPRESSION
     Dosage: 20 MG 2 TIMES PER DA ORAL
     Route: 048
     Dates: start: 20001018, end: 20020127
  2. WELLBUTRIN [Suspect]
     Indication: DEPRESSION
     Dosage: 150 MG 2 TIMES PER DA ORAL
     Route: 048
     Dates: start: 20001018, end: 20020127
  3. CELEXA [Concomitant]
  4. TRAZODONE HCL [Concomitant]
  5. LUVOX [Concomitant]

REACTIONS (3)
  - DISORIENTATION [None]
  - LACUNAR INFARCTION [None]
  - SPEECH DISORDER [None]
